FAERS Safety Report 9730274 (Version 1)
Quarter: 2013Q4

REPORT INFORMATION
  Report Type: Spontaneous
  Country: GB (occurrence: GB)
  Receive Date: 20131202
  Receipt Date: 20131202
  Transmission Date: 20140711
  Serious: Yes (Other)
  Sender: FDA-Public Use
  Company Number: GB-009507513-1311GBR011629

PATIENT
  Sex: Female

DRUGS (6)
  1. LORATADINE [Suspect]
     Dosage: UNK
     Route: 048
  2. CIMETIDINE [Suspect]
     Dosage: UNK
     Route: 048
  3. ALCOHOL [Suspect]
     Route: 048
  4. METRONIDAZOLE [Suspect]
     Dosage: UNK
     Route: 048
  5. ACETAMINOPHEN [Suspect]
     Dosage: UNK
     Route: 048
  6. PAROXETINE [Suspect]
     Dosage: UNK
     Route: 048

REACTIONS (2)
  - Abortion spontaneous [Unknown]
  - Overdose [Unknown]
